FAERS Safety Report 9849927 (Version 1)
Quarter: 2014Q1

REPORT INFORMATION
  Report Type: Spontaneous
  Country: GB (occurrence: GB)
  Receive Date: 20140128
  Receipt Date: 20140128
  Transmission Date: 20141002
  Serious: Yes (Hospitalization)
  Sender: FDA-Public Use
  Company Number: GB-MYLANLABS-2012S1020914

PATIENT
  Age: 51 Year
  Sex: Female
  Weight: 121 kg

DRUGS (1)
  1. EPIRUBICIN [Suspect]
     Indication: CHEMOTHERAPY
     Route: 042
     Dates: start: 20120907

REACTIONS (2)
  - Extravasation [Recovering/Resolving]
  - Wound decomposition [Not Recovered/Not Resolved]
